FAERS Safety Report 7825639-2 (Version None)
Quarter: 2011Q4

REPORT INFORMATION
  Report Type: 
  Country: None (occurrence: None)
  Receive Date: 20111019
  Receipt Date: 20111010
  Transmission Date: 20120403
  Serious: Yes (Disabling, Other)
  Sender: FDA-Public Use
  Company Number: US-BAYER-200836015NA

PATIENT
  Age: 56 Year
  Sex: Male
  Weight: 115.65 kg

DRUGS (34)
  1. CYCLOBENZAPRINE [Concomitant]
  2. HYDROCHLOROTHIAZIDE [Concomitant]
  3. ACETYLSALICYLIC ACID SRT [Concomitant]
  4. PREVACID [Concomitant]
  5. ACTOS [Concomitant]
  6. OMNISCAN [Suspect]
     Indication: NUCLEAR MAGNETIC RESONANCE IMAGING BRAIN
     Dates: start: 20031111, end: 20031111
  7. GADOLINIUM IN UNSPECIFIED DRUG [Suspect]
     Indication: NUCLEAR MAGNETIC RESONANCE IMAGING BRAIN
     Dosage: UNK
     Dates: start: 20031105, end: 20031105
  8. BIAXIN [Concomitant]
  9. MULTIHANCE [Suspect]
     Indication: NUCLEAR MAGNETIC RESONANCE IMAGING
     Dates: start: 20070822, end: 20070822
  10. ADVAIR DISKUS 100/50 [Concomitant]
  11. LIPITOR [Concomitant]
  12. LANTUS [Concomitant]
  13. MAGNEVIST [Suspect]
     Dates: start: 20060510, end: 20060510
  14. AMARYL [Concomitant]
  15. SINGULAIR [Concomitant]
  16. AMBIEN [Concomitant]
  17. PLAVIX [Concomitant]
  18. PREDNISONE [Concomitant]
  19. FUROSEMIDE [Concomitant]
  20. AGGRENOX [Concomitant]
  21. SYNTHROID [Concomitant]
  22. PROZAC [Concomitant]
  23. TRAMADOL HCL [Concomitant]
  24. TRICOR [Concomitant]
  25. BYETTA [Concomitant]
  26. MAGNEVIST [Suspect]
     Indication: NUCLEAR MAGNETIC RESONANCE IMAGING
     Dosage: 20 ML, ONCE
     Dates: start: 20040420, end: 20040420
  27. DIOVAN [Concomitant]
  28. ZOCOR [Concomitant]
  29. AVANDIA [Concomitant]
  30. ALPRAZOLAM [Concomitant]
  31. CELEBREX [Concomitant]
  32. PROTONIX [Concomitant]
  33. MAGNEVIST [Suspect]
     Indication: ANGIOGRAM
  34. ZETIA [Concomitant]

REACTIONS (15)
  - SENSORY LOSS [None]
  - SKIN DISCOLOURATION [None]
  - SCAR [None]
  - SKIN HYPERTROPHY [None]
  - JOINT RANGE OF MOTION DECREASED [None]
  - GAIT DISTURBANCE [None]
  - PAIN [None]
  - NEPHROGENIC SYSTEMIC FIBROSIS [None]
  - SKIN TIGHTNESS [None]
  - PRURITUS GENERALISED [None]
  - SKIN FIBROSIS [None]
  - ASTHENIA [None]
  - MUSCULOSKELETAL STIFFNESS [None]
  - ARTHRALGIA [None]
  - DEPRESSION [None]
